FAERS Safety Report 9278863 (Version 4)
Quarter: 2013Q2

REPORT INFORMATION
  Report Type: Spontaneous
  Country: DK (occurrence: IT)
  Receive Date: 20130508
  Receipt Date: 20130604
  Transmission Date: 20140414
  Serious: Yes (Other)
  Sender: FDA-Public Use
  Company Number: IT-FRI-1000044996

PATIENT
  Age: 31 Year
  Sex: Female
  Weight: 60 kg

DRUGS (6)
  1. ESCITALOPRAM ORAL SOLUTION [Suspect]
     Indication: DEPRESSION
     Route: 048
     Dates: start: 20130401, end: 20130401
  2. DELORAZEPAM [Suspect]
     Indication: DEPRESSION
     Dosage: 40 ML
     Route: 048
     Dates: start: 20130401, end: 20130401
  3. VENLAFAXINE HYDROCHLORIDE [Suspect]
     Indication: DEPRESSION
     Dosage: 2100 MG
     Route: 048
     Dates: start: 20130401, end: 20130401
  4. LEXOTAN [Suspect]
     Indication: DEPRESSION
     Dosage: 27 MG
     Route: 048
     Dates: start: 20130401, end: 20130401
  5. XANAX [Suspect]
     Indication: DEPRESSION
     Dosage: 2.5 MG
     Route: 048
     Dates: start: 20130401, end: 20130401
  6. ZOLOFT [Suspect]
     Indication: DEPRESSION
     Dosage: 750 MG
     Route: 048
     Dates: start: 20130401, end: 20130401

REACTIONS (6)
  - Lethargy [Recovered/Resolved]
  - Mydriasis [Recovered/Resolved]
  - Speech disorder [Recovered/Resolved]
  - Face injury [Recovered/Resolved]
  - Drug abuse [Recovered/Resolved]
  - Overdose [Unknown]
